FAERS Safety Report 14721154 (Version 1)
Quarter: 2018Q2

REPORT INFORMATION
  Report Type: Spontaneous
  Country: US (occurrence: US)
  Receive Date: 20180405
  Receipt Date: 20180405
  Transmission Date: 20180711
  Serious: Yes (Other)
  Sender: FDA-Public Use
  Company Number: US-INFO-000611

PATIENT
  Age: 73 Year
  Sex: Female
  Weight: 58.06 kg

DRUGS (3)
  1. ZOLEDRONIC ACID [Suspect]
     Active Substance: ZOLEDRONIC ACID
     Indication: OSTEOPOROSIS
     Route: 041
     Dates: start: 20180228
  2. LEVOTHYROXINE. [Concomitant]
     Active Substance: LEVOTHYROXINE
     Route: 048
  3. RANITIDINE. [Concomitant]
     Active Substance: RANITIDINE
     Route: 048

REACTIONS (9)
  - Cough [Recovered/Resolved]
  - VIth nerve paralysis [Recovering/Resolving]
  - Inflammation [Recovered/Resolved]
  - Peripheral swelling [Recovered/Resolved]
  - Jaw disorder [Recovered/Resolved]
  - Chills [Recovered/Resolved]
  - Blood calcium decreased [Recovered/Resolved]
  - Headache [Recovered/Resolved]
  - Pain [Recovered/Resolved]

NARRATIVE: CASE EVENT DATE: 201803
